FAERS Safety Report 15794199 (Version 1)
Quarter: 2019Q1

REPORT INFORMATION
  Report Type: Spontaneous
  Country: CN (occurrence: CN)
  Receive Date: 20190107
  Receipt Date: 20190107
  Transmission Date: 20190417
  Serious: Yes (Hospitalization)
  Sender: FDA-Public Use
  Company Number: CN-PFIZER INC-2019001098

PATIENT
  Age: 68 Year
  Sex: Male
  Weight: 69 kg

DRUGS (1)
  1. VORICONAZOLE. [Suspect]
     Active Substance: VORICONAZOLE
     Indication: PULMONARY MYCOSIS
     Dosage: 0.2 G, 2X/DAY
     Route: 048
     Dates: start: 20180923, end: 20181014

REACTIONS (3)
  - Fatigue [Recovering/Resolving]
  - Limb discomfort [Unknown]
  - Hepatic function abnormal [Recovering/Resolving]

NARRATIVE: CASE EVENT DATE: 20181014
